FAERS Safety Report 4273720-X (Version None)
Quarter: 2004Q1

REPORT INFORMATION
  Report Type: 
  Country: None (occurrence: None)
  Receive Date: 20040119
  Receipt Date: 20040112
  Transmission Date: 20041129
  Serious: Yes (Hospitalization)
  Sender: FDA-Public Use
  Company Number: CH-ROCHE-355883

PATIENT
  Age: 72 Year
  Sex: Female

DRUGS (7)
  1. CAPECITABINE [Suspect]
     Dosage: GIVEN AS TWICE DAILY INTERMITTENT THERAPY FOR TWO WEEKS (DAYS 1-15) OF A THREE WEEK CYCLE (ACTUAL D+
     Route: 048
     Dates: start: 20031202
  2. GEMCITABINE [Suspect]
     Dosage: GIVEN ON DAYS ONE AND EIGHT OF A THREE WEEK CYCLE. ACTUAL DOSE:1500 MG
     Route: 042
     Dates: start: 20031201
  3. NEXIUM [Concomitant]
     Route: 048
     Dates: start: 20031201
  4. DURAGESIC [Concomitant]
     Route: 062
     Dates: start: 20031112
  5. LASILACTONE [Concomitant]
     Route: 048
     Dates: start: 20031114
  6. CREON [Concomitant]
     Route: 048
     Dates: start: 20020815
  7. IMODIUM [Concomitant]
     Route: 048
     Dates: start: 20030615

REACTIONS (3)
  - ASTHENIA [None]
  - NERVOUS SYSTEM DISORDER [None]
  - SOMNOLENCE [None]
